FAERS Safety Report 20378048 (Version 2)
Quarter: 2022Q1

REPORT INFORMATION
  Report Type: Spontaneous
  Country: US (occurrence: US)
  Receive Date: 20220126
  Receipt Date: 20220330
  Transmission Date: 20220424
  Serious: No
  Sender: FDA-Public Use
  Company Number: US-ALLERGAN-2142743US

PATIENT

DRUGS (1)
  1. UBRELVY [Suspect]
     Active Substance: UBROGEPANT
     Indication: Product used for unknown indication
     Dosage: UNK
     Dates: start: 20211209, end: 20211209

REACTIONS (2)
  - Rash [Unknown]
  - Hypersensitivity [Unknown]
